FAERS Safety Report 12939984 (Version 2)
Quarter: 2017Q1

REPORT INFORMATION
  Report Type: Report from Study
  Country: CA (occurrence: CA)
  Receive Date: 20161115
  Receipt Date: 20170103
  Transmission Date: 20170428
  Serious: Yes (Other)
  Sender: FDA-Public Use
  Company Number: CA-BRISTOL-MYERS SQUIBB COMPANY-BMS-2016-008362

PATIENT
  Age: 44 Year
  Sex: Female

DRUGS (1)
  1. ABATACEPT [Suspect]
     Active Substance: ABATACEPT
     Indication: RHEUMATOID ARTHRITIS
     Dosage: 500 MG, Q4WK
     Route: 042
     Dates: start: 20090623

REACTIONS (5)
  - Blood pressure systolic decreased [Not Recovered/Not Resolved]
  - Hypotension [Unknown]
  - Treatment noncompliance [Unknown]
  - Syncope [Unknown]
  - Cough [Unknown]

NARRATIVE: CASE EVENT DATE: 20160202
